FAERS Safety Report 5153289-8 (Version None)
Quarter: 2006Q4

REPORT INFORMATION
  Report Type: 
  Country: None (occurrence: None)
  Receive Date: 20061116
  Receipt Date: 20061116
  Transmission Date: 20070319
  Serious: Yes (Other)
  Sender: FDA-Public Use
  Company Number: None

PATIENT
  Sex: Female
  Weight: 122.0176 kg

DRUGS (4)
  1. QUETIAPINE FUMARATE [Suspect]
     Indication: AGGRESSION
     Dosage: 200 MG BID PO; INITIALLY STARTED ON 9/15/03
     Route: 048
     Dates: start: 20031106, end: 20060504
  2. FLUOXETINE [Concomitant]
  3. CALCIUM CITRATE [Concomitant]
  4. MULTIVITAMIN W/ MINERALS [Concomitant]

REACTIONS (2)
  - MACULOPATHY [None]
  - RETINOPATHY [None]
